FAERS Safety Report 21555906 (Version 1)
Quarter: 2022Q4

REPORT INFORMATION
  Report Type: Report from Study
  Country: GB (occurrence: GB)
  Receive Date: 20221104
  Receipt Date: 20221104
  Transmission Date: 20230113
  Serious: Yes (Congenital Anomaly, Other)
  Sender: FDA-Public Use
  Company Number: GB-MYLANLABS-2022M1115362

PATIENT
  Sex: Female
  Weight: 2.48 kg

DRUGS (6)
  1. EMTRICITABINE\TENOFOVIR [Suspect]
     Active Substance: EMTRICITABINE\TENOFOVIR
     Indication: HIV infection
     Dosage: 1 DOSAGE FORM, 1 TAB/CAPS
     Route: 064
     Dates: start: 20210719
  2. ATAZANAVIR [Suspect]
     Active Substance: ATAZANAVIR
     Indication: HIV infection
     Dosage: 300 MILLIGRAM DAILY; 300 MILLIGRAM, QD
     Route: 064
     Dates: start: 20211229
  3. DOLUTEGRAVIR [Suspect]
     Active Substance: DOLUTEGRAVIR
     Indication: HIV infection
     Dosage: 50 MILLIGRAM DAILY; 50 MILLIGRAM, QD
     Route: 064
     Dates: start: 20220125
  4. ELVITEGRAVIR [Suspect]
     Active Substance: ELVITEGRAVIR
     Indication: HIV infection
     Dosage: UNK (TAB/CAPS)
     Route: 064
     Dates: end: 20210718
  5. RITONAVIR [Suspect]
     Active Substance: RITONAVIR
     Indication: HIV infection
     Dosage: 100 MILLIGRAM DAILY; 100 MILLIGRAM, QD
     Route: 064
     Dates: start: 20211229
  6. RALTEGRAVIR [Suspect]
     Active Substance: RALTEGRAVIR
     Indication: HIV infection
     Dosage: 800 MILLIGRAM DAILY; 800 MILLIGRAM, QD, DURATION: 163 DAYS
     Route: 064
     Dates: start: 20210719, end: 20211228

REACTIONS (3)
  - Renal dysplasia [Unknown]
  - Renal aplasia [Unknown]
  - Foetal exposure during pregnancy [Recovered/Resolved]
